FAERS Safety Report 20115436 (Version 3)
Quarter: 2025Q3

REPORT INFORMATION
  Report Type: Spontaneous
  Country: US (occurrence: US)
  Receive Date: 20211126
  Receipt Date: 20250728
  Transmission Date: 20251020
  Serious: Yes (Life-Threatening, Other)
  Sender: AUROBINDO
  Company Number: US-AUROBINDO-AUR-APL-2021-048160

PATIENT
  Age: 82 Year
  Sex: Female

DRUGS (7)
  1. CLOPIDOGREL [Suspect]
     Active Substance: CLOPIDOGREL BISULFATE
     Indication: Atrial fibrillation
     Route: 065
  2. CLOPIDOGREL [Suspect]
     Active Substance: CLOPIDOGREL BISULFATE
     Indication: Transient ischaemic attack
  3. APIXABAN [Suspect]
     Active Substance: APIXABAN
     Indication: Atrial fibrillation
     Route: 065
  4. APIXABAN [Suspect]
     Active Substance: APIXABAN
     Indication: Transient ischaemic attack
  5. MIDODRINE [Concomitant]
     Active Substance: MIDODRINE
     Indication: Hypotension
     Route: 065
  6. NOREPINEPHRINE [Concomitant]
     Active Substance: NOREPINEPHRINE
     Indication: Product used for unknown indication
     Route: 042
  7. SODIUM CHLORIDE [Concomitant]
     Active Substance: SODIUM CHLORIDE
     Indication: Hypotension
     Route: 040

REACTIONS (6)
  - Splenic rupture [Unknown]
  - Haemangioma of spleen [Unknown]
  - Haemoperitoneum [Unknown]
  - Hypotension [Unknown]
  - Haemoglobin decreased [Unknown]
  - Abdominal pain [Unknown]
